FAERS Safety Report 11510489 (Version 1)
Quarter: 2015Q3

REPORT INFORMATION
  Report Type: Spontaneous
  Country: US (occurrence: US)
  Receive Date: 20150915
  Receipt Date: 20150915
  Transmission Date: 20151125
  Serious: No
  Sender: FDA-Public Use
  Company Number: US-JNJFOC-20150623065

PATIENT
  Age: 47 Year
  Sex: Male
  Weight: 120.2 kg

DRUGS (1)
  1. INFANTS TYLENOL [Suspect]
     Active Substance: ACETAMINOPHEN
     Indication: PRODUCT TASTE ABNORMAL
     Dosage: OUTSIDE OF SYRINGE TIP
     Route: 048
     Dates: start: 20150625, end: 20150625

REACTIONS (3)
  - Drug administered to patient of inappropriate age [Unknown]
  - Product physical issue [Unknown]
  - Wrong technique in product usage process [Unknown]
